FAERS Safety Report 9723183 (Version 2)
Quarter: 2014Q2

REPORT INFORMATION
  Report Type: Spontaneous
  Country: US (occurrence: US)
  Receive Date: 20131202
  Receipt Date: 20140411
  Transmission Date: 20141212
  Serious: No
  Sender: FDA-Public Use
  Company Number: US-PFIZER INC-2013338231

PATIENT
  Age: 81 Year
  Sex: Female

DRUGS (11)
  1. CLEOCIN [Suspect]
     Dosage: UNK
  2. LIPITOR [Suspect]
     Dosage: UNK
  3. NORVASC [Suspect]
     Dosage: UNK
  4. INDERAL [Suspect]
     Dosage: UNK
  5. ENALAPRIL MALEATE [Suspect]
     Dosage: UNK
  6. BIAXIN [Suspect]
     Dosage: UNK
  7. CLONIDINE [Suspect]
     Dosage: UNK
  8. COZAAR [Suspect]
     Dosage: UNK
  9. TETANUS VACCINE [Suspect]
     Dosage: UNK
  10. FUROSEMIDE [Suspect]
     Dosage: UNK
  11. BYSTOLIC [Suspect]
     Dosage: UNK

REACTIONS (1)
  - Drug hypersensitivity [Unknown]
